FAERS Safety Report 6722858-3 (Version None)
Quarter: 2010Q2

REPORT INFORMATION
  Report Type: 
  Country: None (occurrence: None)
  Receive Date: 20100512
  Receipt Date: 20100512
  Transmission Date: 20101027
  Serious: Yes (Other)
  Sender: FDA-Public Use
  Company Number: None

PATIENT
  Sex: Male
  Weight: 20.8 kg

DRUGS (1)
  1. TRILEPTAL [Suspect]
     Indication: COMPLEX PARTIAL SEIZURES
     Dosage: 300MG/5ML: 6ML (360MG) TWICE A DAY ORAL
     Route: 048
     Dates: start: 20091228, end: 20100506

REACTIONS (2)
  - ANGER [None]
  - PRODUCT SUBSTITUTION ISSUE [None]
